FAERS Safety Report 24586748 (Version 2)
Quarter: 2024Q4

REPORT INFORMATION
  Report Type: Spontaneous
  Country: GB (occurrence: GB)
  Receive Date: 20241107
  Receipt Date: 20241119
  Transmission Date: 20250114
  Serious: Yes (Hospitalization, Other)
  Sender: CHATTEM
  Company Number: GB-UKI-SPO/GBR/24/0015517

PATIENT
  Sex: Female

DRUGS (1)
  1. FEXOFENADINE HYDROCHLORIDE [Suspect]
     Active Substance: FEXOFENADINE HYDROCHLORIDE
     Indication: Product used for unknown indication
     Route: 048

REACTIONS (5)
  - Dysphagia [Unknown]
  - Foreign body in throat [Unknown]
  - Feeling abnormal [Unknown]
  - Oropharyngeal discomfort [Unknown]
  - Product size issue [Unknown]
